FAERS Safety Report 9826196 (Version 2)
Quarter: 2014Q2

REPORT INFORMATION
  Report Type: Spontaneous
  Country: IT (occurrence: IT)
  Receive Date: 20140117
  Receipt Date: 20140414
  Transmission Date: 20141212
  Serious: Yes (Hospitalization)
  Sender: FDA-Public Use
  Company Number: IT-MERCK-1401ITA006063

PATIENT
  Age: 45 Year
  Sex: Female

DRUGS (3)
  1. PEGINTRON [Suspect]
     Dosage: UNK
     Dates: start: 20130909, end: 20131128
  2. REBETOL [Concomitant]
     Dosage: UNK
     Route: 048
     Dates: start: 20130909, end: 20131128
  3. VICTRELIS [Concomitant]
     Dosage: UNK
     Route: 048

REACTIONS (1)
  - Agranulocytosis [Recovering/Resolving]
